FAERS Safety Report 9331644 (Version 1)
Quarter: 2013Q2

REPORT INFORMATION
  Report Type: Spontaneous
  Country: FR (occurrence: FR)
  Receive Date: 20130605
  Receipt Date: 20130605
  Transmission Date: 20140414
  Serious: Yes (Other)
  Sender: FDA-Public Use
  Company Number: FR-ABBOTT-13P-056-1097232-00

PATIENT
  Age: 50 Year
  Sex: Male

DRUGS (4)
  1. HUMIRA [Suspect]
     Indication: PSORIATIC ARTHROPATHY
     Route: 058
     Dates: start: 2005, end: 20100608
  2. HUMIRA [Suspect]
     Route: 058
     Dates: start: 20100608, end: 20110606
  3. ENBREL [Suspect]
     Indication: PSORIATIC ARTHROPATHY
     Route: 058
     Dates: start: 20110606, end: 20130416
  4. IMETH [Concomitant]
     Indication: PRODUCT USED FOR UNKNOWN INDICATION
     Dates: start: 20130416

REACTIONS (9)
  - Myalgia [Unknown]
  - Middle insomnia [Unknown]
  - Gait disturbance [Unknown]
  - Ataxia [Unknown]
  - Cerebellar syndrome [Unknown]
  - Head titubation [Unknown]
  - Tremor [Unknown]
  - Cerebellar syndrome [Unknown]
  - Pain [Unknown]
